FAERS Safety Report 22157965 (Version 2)
Quarter: 2023Q2

REPORT INFORMATION
  Report Type: Spontaneous
  Country: IE (occurrence: IE)
  Receive Date: 20230330
  Receipt Date: 20230412
  Transmission Date: 20230722
  Serious: Yes (Other)
  Sender: FDA-Public Use
  Company Number: IE-TEVA-2023-IE-2870744

PATIENT
  Age: 37 Year
  Sex: Female

DRUGS (8)
  1. PREDNISOLONE [Suspect]
     Active Substance: PREDNISOLONE
     Indication: Immune thrombocytopenia
     Dosage: 20 MILLIGRAM DAILY;
     Route: 048
  2. ALLOPURINOL [Suspect]
     Active Substance: ALLOPURINOL
     Indication: Product used for unknown indication
     Route: 065
  3. IMMUNE GLOBULIN NOS [Suspect]
     Active Substance: IMMUNE GLOBULIN NOS
     Indication: Immune thrombocytopenia
     Dosage: 1 G/KG OF BOOKING WEIGHT (70 G ONCE-ONLY DOSE)
     Route: 065
  4. COTRIMOXAZOLE [Suspect]
     Active Substance: SULFAMETHOXAZOLE\TRIMETHOPRIM
     Indication: Product used for unknown indication
     Route: 065
  5. IRON [Suspect]
     Active Substance: IRON
     Indication: Serum ferritin decreased
     Route: 065
  6. IRON [Suspect]
     Active Substance: IRON
     Indication: Mineral supplementation
  7. CLADRIBINE [Concomitant]
     Active Substance: CLADRIBINE
     Indication: Acute febrile neutrophilic dermatosis
     Dosage: .1 MG/KG DAILY; (SINGLE FIVE-DAY COURSE AT NINE WEEKS POSTPARTUM)
     Route: 041
  8. CLADRIBINE [Concomitant]
     Active Substance: CLADRIBINE
     Indication: Hairy cell leukaemia

REACTIONS (5)
  - Febrile neutropenia [Recovered/Resolved]
  - Rash erythematous [Recovered/Resolved]
  - Drug ineffective [Unknown]
  - Maternal exposure during pregnancy [Unknown]
  - Live birth [Unknown]
